FAERS Safety Report 6679489-3 (Version None)
Quarter: 2010Q2

REPORT INFORMATION
  Report Type: 
  Country: None (occurrence: None)
  Receive Date: 20100408
  Receipt Date: 20090818
  Transmission Date: 20101027
  Serious: No
  Sender: FDA-Public Use
  Company Number: 2009-00512

PATIENT
  Age: 82 Year
  Sex: Male
  Weight: 95.2554 kg

DRUGS (3)
  1. ZICAM ALLERGY RELIEF NASAL GEL [Suspect]
     Dosage: ABOUT A YEAR AGO
  2. METOPROLOL TARTRATE [Concomitant]
  3. FUROSEMIDE [Concomitant]

REACTIONS (2)
  - AGEUSIA [None]
  - ANOSMIA [None]
